FAERS Safety Report 21177642 (Version 2)
Quarter: 2022Q3

REPORT INFORMATION
  Report Type: Report from Study
  Country: US (occurrence: US)
  Receive Date: 20220805
  Receipt Date: 20220809
  Transmission Date: 20221027
  Serious: No
  Sender: FDA-Public Use
  Company Number: US-BIOVITRUM-2022US05242

PATIENT
  Age: 30 Year
  Sex: Male

DRUGS (2)
  1. KINERET [Suspect]
     Active Substance: ANAKINRA
     Indication: Pericarditis
     Dates: start: 20210625
  2. KINERET [Suspect]
     Active Substance: ANAKINRA
     Dates: start: 20210615

REACTIONS (5)
  - Joint dislocation [Unknown]
  - Nasopharyngitis [Unknown]
  - Mood altered [Unknown]
  - Product dose omission issue [Unknown]
  - Off label use [Unknown]

NARRATIVE: CASE EVENT DATE: 20210625
